FAERS Safety Report 5798414-0 (Version None)
Quarter: 2008Q3

REPORT INFORMATION
  Report Type: 
  Country: None (occurrence: None)
  Receive Date: 20080701
  Receipt Date: 20080701
  Transmission Date: 20090109
  Serious: Yes (Death)
  Sender: FDA-Public Use
  Company Number: None

PATIENT
  Age: 6 Year
  Sex: Female
  Weight: 26.7622 kg

DRUGS (1)
  1. FENTANYL TRANSDERMAL SYSTEM [Suspect]
     Dosage: FILM, EXTENDED RELEASE

REACTIONS (5)
  - LOSS OF CONSCIOUSNESS [None]
  - MEDICATION ERROR [None]
  - VICTIM OF CRIME [None]
  - VICTIM OF HOMICIDE [None]
  - WRONG DRUG ADMINISTERED [None]
